FAERS Safety Report 26139705 (Version 1)
Quarter: 2025Q4

REPORT INFORMATION
  Report Type: Spontaneous
  Country: EU (occurrence: EU)
  Receive Date: 20251210
  Receipt Date: 20251210
  Transmission Date: 20260117
  Serious: Yes (Hospitalization, Other)
  Sender: CHEPLAPHARM
  Company Number: None

PATIENT
  Age: 57 Year
  Sex: Female
  Weight: 81 kg

DRUGS (14)
  1. QUETIAPINE [Suspect]
     Active Substance: QUETIAPINE
     Indication: Schizoaffective disorder
     Dosage: LONG COURSE?DAILY DOSE: 300 MILLIGRAM
     Route: 048
     Dates: end: 20250926
  2. QUETIAPINE [Suspect]
     Active Substance: QUETIAPINE
     Indication: Schizoaffective disorder
     Dosage: 0-0-0-2?DAILY DOSE: 800 MILLIGRAM
     Route: 048
     Dates: end: 20250926
  3. LEVOMEPROMAZINE [Suspect]
     Active Substance: LEVOMEPROMAZINE
     Indication: Schizoaffective disorder
     Dosage: 1-1-2?DAILY DOSE: 100 MILLIGRAM
     Route: 048
     Dates: end: 20250918
  4. TRIMEPRAZINE [Suspect]
     Active Substance: TRIMEPRAZINE
     Indication: Insomnia
     Dosage: DROPS?DAILY DOSE: 20 DROP
     Route: 048
  5. TRIHEXYPHENIDYL HYDROCHLORIDE [Suspect]
     Active Substance: TRIHEXYPHENIDYL HYDROCHLORIDE
     Indication: Product used for unknown indication
     Dosage: 1-0-1; EXTENDED-RELEASE CAPSULE?DAILY DOSE: 4 DOSAGE FORM
     Route: 048
  6. HALDOL [Suspect]
     Active Substance: HALOPERIDOL
     Indication: Schizoaffective disorder
     Route: 048
     Dates: end: 20250918
  7. DEPAKOTE [Suspect]
     Active Substance: DIVALPROEX SODIUM
     Dosage: 500 MG ?-?-1?DAILY DOSE: 1000 MILLIGRAM
     Route: 048
  8. VALIUM [Suspect]
     Active Substance: DIAZEPAM
     Dosage: 0.5-0.5-0-1?DAILY DOSE: 2 MILLIGRAM
     Route: 048
  9. VALIUM [Suspect]
     Active Substance: DIAZEPAM
     Dosage: 10 MG/2 ML, INJECTABLE, 1 AMPOULE IN THE MORNING AT 8 A.M. IF NECESSARY
  10. TRIMEBUTINE [Suspect]
     Active Substance: TRIMEBUTINE
     Dosage: DAILY DOSE: 600 MILLIGRAM
     Route: 048
  11. LANSOPRAZOLE [Suspect]
     Active Substance: LANSOPRAZOLE
     Dosage: DAILY DOSE: 30 MILLIGRAM
     Route: 048
  12. SODIUM CHLORIDE [Suspect]
     Active Substance: SODIUM CHLORIDE
     Dosage: 0.5 MG, 2-0-2?DAILY DOSE: 4 DOSAGE FORM
     Route: 048
  13. MINERAL OIL [Suspect]
     Active Substance: MINERAL OIL
     Dosage: IN MORNING
     Route: 048
  14. POLYETHYLENE GLYCOLS [Suspect]
     Active Substance: POLYETHYLENE GLYCOLS
     Dosage: 1-0-1
     Route: 048

REACTIONS (5)
  - Ileus paralytic [Recovering/Resolving]
  - Inflammation [Unknown]
  - Pneumonia aspiration [Recovering/Resolving]
  - Ileus [Recovering/Resolving]
  - Bronchopulmonary disease [Recovering/Resolving]

NARRATIVE: CASE EVENT DATE: 20250901
